FAERS Safety Report 9029006 (Version 2)
Quarter: 2013Q1

REPORT INFORMATION
  Report Type: Spontaneous
  Country: US (occurrence: US)
  Receive Date: 20130122
  Receipt Date: 20130327
  Transmission Date: 20140127
  Serious: Yes (Other)
  Sender: FDA-Public Use
  Company Number: PHEH2013US001722

PATIENT
  Sex: Male

DRUGS (2)
  1. FOCALIN XR [Suspect]
     Dosage: UNK UKN, UNK
  2. ABILIFY [Concomitant]

REACTIONS (2)
  - Lung disorder [Unknown]
  - Dyspnoea [Unknown]
